FAERS Safety Report 9158496 (Version 1)
Quarter: 2013Q1

REPORT INFORMATION
  Report Type: Spontaneous
  Country: US (occurrence: US)
  Receive Date: 20130312
  Receipt Date: 20130312
  Transmission Date: 20140127
  Serious: Yes (Hospitalization)
  Sender: FDA-Public Use
  Company Number: CHPA2013US004229

PATIENT
  Age: 80 Year
  Sex: Female

DRUGS (1)
  1. TRANSDERM SCOP [Suspect]
     Indication: MOTION SICKNESS
     Dosage: 2 DF, ONCE/SINGLE
     Route: 062
     Dates: start: 20130302, end: 20130306

REACTIONS (5)
  - Aphasia [Recovering/Resolving]
  - Confusional state [Recovering/Resolving]
  - Feeling abnormal [Not Recovered/Not Resolved]
  - Overdose [Unknown]
  - Incorrect drug administration duration [Unknown]
